FAERS Safety Report 8232892-2 (Version None)
Quarter: 2012Q1

REPORT INFORMATION
  Report Type: 
  Country: None (occurrence: None)
  Receive Date: 20120324
  Receipt Date: 20120314
  Transmission Date: 20120608
  Serious: Yes (Other)
  Sender: FDA-Public Use
  Company Number: BR-AMGEN-BRASP2012017403

PATIENT
  Age: 59 Year
  Sex: Female
  Weight: 82 kg

DRUGS (5)
  1. ARAVA [Concomitant]
     Dosage: UNK
  2. ENBREL [Suspect]
     Indication: RHEUMATOID ARTHRITIS
     Dosage: 50 MG, ONCE WEEKLY
     Route: 058
     Dates: start: 20110612, end: 20120201
  3. PREDNISONE TAB [Concomitant]
     Dosage: 20 MG, UNK
  4. LEVOTHYROXINE SODIUM [Concomitant]
     Dosage: 125 MG, UNK
  5. ENALAPRIL MALEATE [Concomitant]
     Dosage: 5 MG, UNK

REACTIONS (2)
  - HAEMORRHAGE [None]
  - IMMUNE SYSTEM DISORDER [None]
